FAERS Safety Report 6378523-8 (Version None)
Quarter: 2009Q3

REPORT INFORMATION
  Report Type: 
  Country: None (occurrence: None)
  Receive Date: 20090928
  Receipt Date: 20090917
  Transmission Date: 20100115
  Serious: Yes (Hospitalization)
  Sender: FDA-Public Use
  Company Number: US-BIOGENIDEC-2009BI030416

PATIENT
  Age: 59 Year
  Sex: Female

DRUGS (3)
  1. AVONEX [Suspect]
     Indication: MULTIPLE SCLEROSIS
     Route: 030
     Dates: start: 20031201, end: 20050301
  2. AVONEX [Suspect]
     Route: 030
     Dates: start: 20060801, end: 20090201
  3. AVONEX [Suspect]
     Route: 030
     Dates: start: 20090401

REACTIONS (2)
  - COLLAPSE OF LUNG [None]
  - NEOPLASM [None]
